FAERS Safety Report 7293943-5 (Version None)
Quarter: 2011Q1

REPORT INFORMATION
  Report Type: 
  Country: None (occurrence: None)
  Receive Date: 20110203
  Receipt Date: 20110118
  Transmission Date: 20110831
  Serious: Yes (Death)
  Sender: FDA-Public Use
  Company Number: OTH-SPN-2011001

PATIENT
  Sex: Female

DRUGS (1)
  1. CYSTADANE [Suspect]
     Dosage: 1,300 G EVERY DAY

REACTIONS (1)
  - CEREBROVASCULAR ACCIDENT [None]
